FAERS Safety Report 22052716 (Version 1)
Quarter: 2023Q1

REPORT INFORMATION
  Report Type: Report from Study
  Country: CA (occurrence: CA)
  Receive Date: 20230302
  Receipt Date: 20230302
  Transmission Date: 20230417
  Serious: Yes (Other)
  Sender: FDA-Public Use
  Company Number: CA-JNJFOC-20190514865

PATIENT
  Age: 76 Year
  Sex: Female
  Weight: 102.5 kg

DRUGS (2)
  1. TREMFYA [Suspect]
     Active Substance: GUSELKUMAB
     Indication: Psoriasis
     Dosage: STRENGTH = 100 MG
     Route: 058
     Dates: start: 20190411
  2. TREMFYA [Suspect]
     Active Substance: GUSELKUMAB
     Dosage: STRENGTH = 100 MG
     Route: 058
     Dates: start: 201905

REACTIONS (3)
  - Swelling [Not Recovered/Not Resolved]
  - Psoriasis [Unknown]
  - Cellulitis [Recovered/Resolved]

NARRATIVE: CASE EVENT DATE: 20190508
